FAERS Safety Report 20804122 (Version 2)
Quarter: 2022Q2

REPORT INFORMATION
  Report Type: Spontaneous
  Country: US (occurrence: US)
  Receive Date: 20220509
  Receipt Date: 20220523
  Transmission Date: 20220720
  Serious: No
  Sender: FDA-Public Use
  Company Number: US-PFIZER INC-202200649359

PATIENT
  Age: 34 Year
  Sex: Female
  Weight: 58.97 kg

DRUGS (1)
  1. GABAPENTIN [Suspect]
     Active Substance: GABAPENTIN
     Dosage: 300 MG, 1X/DAY (AT NIGHT)

REACTIONS (1)
  - Drug ineffective [Unknown]
